FAERS Safety Report 24706597 (Version 2)
Quarter: 2024Q4

REPORT INFORMATION
  Report Type: Spontaneous
  Country: US (occurrence: US)
  Receive Date: 20241206
  Receipt Date: 20241226
  Transmission Date: 20250115
  Serious: Yes (Hospitalization, Other)
  Sender: BAYER HEALTHCARE PHARMACEUTICALS INC.
  Company Number: US-BAYER-2024A169179

PATIENT
  Sex: Male

DRUGS (1)
  1. NUBEQA [Suspect]
     Active Substance: DAROLUTAMIDE
     Dosage: UNK
     Dates: start: 2024

REACTIONS (8)
  - Lung disorder [None]
  - Lung disorder [None]
  - Lung disorder [None]
  - Cholelithiasis [None]
  - Jaundice [None]
  - Mood altered [None]
  - Spleen disorder [None]
  - Fatigue [None]
